FAERS Safety Report 17457771 (Version 3)
Quarter: 2020Q1

REPORT INFORMATION
  Report Type: Report from Study
  Country: CO (occurrence: CO)
  Receive Date: 20200225
  Receipt Date: 20200317
  Transmission Date: 20200409
  Serious: Yes (Hospitalization)
  Sender: FDA-Public Use
  Company Number: CO-ACTELION-A-CH2020-202348

PATIENT
  Age: 72 Year
  Sex: Female
  Weight: 45 kg

DRUGS (1)
  1. OPSUMIT [Suspect]
     Active Substance: MACITENTAN
     Indication: PULMONARY ARTERIAL HYPERTENSION
     Dosage: 10 MG, QD
     Route: 048
     Dates: start: 20200211

REACTIONS (16)
  - Lung infiltration [Recovering/Resolving]
  - Gait disturbance [Recovering/Resolving]
  - Walking disability [Not Recovered/Not Resolved]
  - Somnolence [Not Recovered/Not Resolved]
  - Chest pain [Recovering/Resolving]
  - Eating disorder [Not Recovered/Not Resolved]
  - Back pain [Recovering/Resolving]
  - Pneumonia bacterial [Unknown]
  - Cyanosis [Not Recovered/Not Resolved]
  - Pneumonia [Recovering/Resolving]
  - Peripheral swelling [Recovering/Resolving]
  - Nasal congestion [Not Recovered/Not Resolved]
  - Secretion discharge [Not Recovered/Not Resolved]
  - Pyrexia [Unknown]
  - Decreased appetite [Unknown]
  - Urinary tract infection [Recovering/Resolving]

NARRATIVE: CASE EVENT DATE: 20200226
